FAERS Safety Report 5380982-4 (Version None)
Quarter: 2007Q3

REPORT INFORMATION
  Report Type: 
  Country: None (occurrence: None)
  Receive Date: 20070702
  Receipt Date: 20061116
  Transmission Date: 20080115
  Serious: Yes (Hospitalization)
  Sender: FDA-Public Use
  Company Number: SPV1-2006-01858

PATIENT
  Age: 29 Year
  Sex: Female

DRUGS (1)
  1. PENTASA [Suspect]
     Indication: COLITIS ULCERATIVE
     Dosage: 750 MG 3X DAILY, ORAL
     Route: 048
     Dates: start: 20050828, end: 20061027

REACTIONS (1)
  - PYREXIA [None]
